FAERS Safety Report 13258762 (Version 2)
Quarter: 2017Q1

REPORT INFORMATION
  Report Type: Report from Study
  Country: CN (occurrence: CN)
  Receive Date: 20170222
  Receipt Date: 20170322
  Transmission Date: 20170428
  Serious: Yes (Death, Hospitalization)
  Sender: FDA-Public Use
  Company Number: CN-ROCHE-1826228

PATIENT
  Age: 55 Year
  Sex: Male
  Weight: 58 kg

DRUGS (1)
  1. AVASTIN [Suspect]
     Active Substance: BEVACIZUMAB
     Indication: COLORECTAL CANCER
     Route: 041
     Dates: start: 20160120, end: 20161229

REACTIONS (18)
  - Diarrhoea [Unknown]
  - General physical health deterioration [Unknown]
  - Somnolence [Unknown]
  - Platelet count decreased [Unknown]
  - Thyroid hormones decreased [Unknown]
  - Blood potassium decreased [Unknown]
  - Red blood cell analysis abnormal [Unknown]
  - Anaemia [Unknown]
  - Electrolyte imbalance [Unknown]
  - Asthenia [Unknown]
  - Decreased appetite [Unknown]
  - Coma [Unknown]
  - Blood creatinine increased [Unknown]
  - Cardiac arrest [Fatal]
  - Transaminases decreased [Unknown]
  - Movement disorder [Unknown]
  - Protein urine present [Unknown]
  - Blood sodium decreased [Unknown]

NARRATIVE: CASE EVENT DATE: 20170113
